FAERS Safety Report 5589743-4 (Version None)
Quarter: 2008Q1

REPORT INFORMATION
  Report Type: 
  Country: None (occurrence: None)
  Receive Date: 20080114
  Receipt Date: 20071127
  Transmission Date: 20080703
  Serious: Yes (Hospitalization, Other)
  Sender: FDA-Public Use
  Company Number: NG-BAYER-200810382GPV

PATIENT
  Age: 14 Year
  Sex: Male

DRUGS (1)
  1. ASPIRIN [Suspect]
     Indication: PYREXIA
     Route: 065

REACTIONS (4)
  - ANAEMIA [None]
  - HAEMOGLOBIN URINE PRESENT [None]
  - HAEMOLYTIC ANAEMIA [None]
  - JAUNDICE [None]
